FAERS Safety Report 20058720 (Version 1)
Quarter: 2021Q4

REPORT INFORMATION
  Report Type: Report from Study
  Country: MX (occurrence: MX)
  Receive Date: 20211111
  Receipt Date: 20211111
  Transmission Date: 20220303
  Serious: Yes (Other)
  Sender: FDA-Public Use
  Company Number: MX-NOVARTISPH-NVSC2021MX234942

PATIENT
  Sex: Female
  Weight: 57 kg

DRUGS (1)
  1. GLYCOPYRRONIUM\INDACATEROL [Suspect]
     Active Substance: GLYCOPYRRONIUM\INDACATEROL
     Indication: Chronic obstructive pulmonary disease
     Dosage: 1 DF, QD
     Route: 055

REACTIONS (5)
  - Maculopathy [Unknown]
  - Visual impairment [Unknown]
  - Dyspnoea [Unknown]
  - Feeling abnormal [Unknown]
  - Off label use [Unknown]
